FAERS Safety Report 4431510-9 (Version None)
Quarter: 2004Q3

REPORT INFORMATION
  Report Type: 
  Country: None (occurrence: None)
  Receive Date: 20040824
  Receipt Date: 20040818
  Transmission Date: 20050211
  Serious: Yes (Other)
  Sender: FDA-Public Use
  Company Number: PHRM2004FR02621

PATIENT
  Age: 30 Year
  Sex: Female

DRUGS (1)
  1. PARLODEL [Suspect]
     Indication: BREAST FEEDING
     Route: 048
     Dates: start: 20040101

REACTIONS (4)
  - CHOLESTASIS [None]
  - CYTOLYTIC HEPATITIS [None]
  - HEPATIC PAIN [None]
  - MICROLITHIASIS [None]
